FAERS Safety Report 24642225 (Version 2)
Quarter: 2024Q4

REPORT INFORMATION
  Report Type: Spontaneous
  Country: JP (occurrence: JP)
  Receive Date: 20241120
  Receipt Date: 20241126
  Transmission Date: 20250114
  Serious: Yes (Other)
  Sender: PFIZER
  Company Number: JP-MLMSERVICE-20241106-PI251219-00123-1

PATIENT
  Age: 77 Year
  Sex: Male

DRUGS (6)
  1. DOCETAXEL [Suspect]
     Active Substance: DOCETAXEL
     Indication: Mixed adenoneuroendocrine carcinoma
     Dosage: ONCE EVERY 21?DAYS AT A DOSE OF 70?MG/M2 FOR 4 COURSES
  2. DOCETAXEL [Suspect]
     Active Substance: DOCETAXEL
     Indication: Prostate cancer metastatic
  3. DAROLUTAMIDE [Suspect]
     Active Substance: DAROLUTAMIDE
     Indication: Mixed adenoneuroendocrine carcinoma
     Dosage: 1200 MG, 1X/DAY
  4. DAROLUTAMIDE [Suspect]
     Active Substance: DAROLUTAMIDE
     Indication: Prostate cancer metastatic
  5. DEGARELIX [Concomitant]
     Active Substance: DEGARELIX
     Indication: Mixed adenoneuroendocrine carcinoma
     Dosage: 240 MG(INITIAL DOSE)
  6. DEGARELIX [Concomitant]
     Active Substance: DEGARELIX
     Indication: Prostate cancer metastatic
     Dosage: 480 MG, EVERY 3 MONTHS
     Route: 058

REACTIONS (2)
  - Hepatic failure [Recovered/Resolved]
  - Neutropenia [Unknown]
